FAERS Safety Report 4523332-5 (Version None)
Quarter: 2004Q4

REPORT INFORMATION
  Report Type: 
  Country: None (occurrence: None)
  Receive Date: 20041209
  Receipt Date: 20041209
  Transmission Date: 20050328
  Serious: Yes (Other)
  Sender: FDA-Public Use
  Company Number: None

PATIENT
  Age: 61 Year
  Sex: Female

DRUGS (6)
  1. SIMVASTATIN [Suspect]
     Indication: HYPERLIPIDAEMIA
     Dosage: 40MG   QD   ORAL
     Route: 048
     Dates: start: 20040224, end: 20040722
  2. RAMIPRIL [Concomitant]
  3. SENNA CONCENTRATE [Concomitant]
  4. HYDROCHLOROTHIAZIDE [Concomitant]
  5. GLIPIZIDE [Concomitant]
  6. RABEPRAZOLE SODIUM [Concomitant]

REACTIONS (1)
  - HOT FLUSH [None]
